FAERS Safety Report 10751502 (Version 1)
Quarter: 2015Q1

REPORT INFORMATION
  Report Type: Spontaneous
  Country: FR (occurrence: FR)
  Receive Date: 20150130
  Receipt Date: 20150130
  Transmission Date: 20150721
  Serious: Yes (Death, Other)
  Sender: FDA-Public Use
  Company Number: FR-GLAXOSMITHKLINE-FR2015GSK011092

PATIENT
  Sex: Male
  Weight: 3.3 kg

DRUGS (4)
  1. LAMICTAL [Suspect]
     Active Substance: LAMOTRIGINE
     Indication: EPILEPSY
     Dosage: 50 MG, BID
     Route: 064
  2. VALIUM [Concomitant]
     Active Substance: DIAZEPAM
  3. DEPAKINE [Suspect]
     Active Substance: VALPROATE SODIUM
     Indication: EPILEPSY
     Dosage: 750 MG, BID
     Route: 064
     Dates: end: 20141028
  4. RIVOTRIL [Concomitant]
     Active Substance: CLONAZEPAM

REACTIONS (3)
  - Foetal exposure during pregnancy [Unknown]
  - Congenital diaphragmatic hernia [Fatal]
  - Pulmonary hypoplasia [Fatal]

NARRATIVE: CASE EVENT DATE: 2014
